FAERS Safety Report 10061617 (Version 1)
Quarter: 2014Q2

REPORT INFORMATION
  Report Type: Spontaneous
  Country: GB (occurrence: None)
  Receive Date: 20140403
  Receipt Date: 20140403
  Transmission Date: 20141212
  Serious: Yes (Life-Threatening)
  Sender: FDA-Public Use
  Company Number: FK201401104

PATIENT
  Age: 57 Year
  Sex: Female
  Weight: 102 kg

DRUGS (6)
  1. ROCURONIUM [Suspect]
     Indication: NEUROMUSCULAR BLOCKADE
     Route: 042
     Dates: start: 20140130, end: 20140130
  2. BECLOMETHASONE (BECLOMETASONE DIPROPIONATE) (BECLOMETASONE DIPROPIONATE) [Concomitant]
  3. CITALOPRAM (BECLOMETASONE DIPROPIONATE) (BECLOMETASONE DIPROPIONATE) [Concomitant]
  4. SALBUTAMOL (SALBUTAMOL) [Concomitant]
  5. SERTRALINE (SERTRALINE) [Concomitant]
  6. ZOPICLONE (ZOPICLONE) [Concomitant]

REACTIONS (5)
  - Anaphylactic reaction [None]
  - Cardiac arrest [None]
  - Renal failure [None]
  - Dialysis [None]
  - Confusional state [None]
